FAERS Safety Report 9602906 (Version 2)
Quarter: 2013Q4

REPORT INFORMATION
  Report Type: Report from Study
  Country: AT (occurrence: AT)
  Receive Date: 20131007
  Receipt Date: 20131007
  Transmission Date: 20140711
  Serious: Yes (Hospitalization)
  Sender: FDA-Public Use
  Company Number: AT-ABBVIE-09P-009-0569113-01

PATIENT
  Age: 46 Year
  Sex: Female

DRUGS (2)
  1. HUMIRA [Suspect]
     Indication: CROHN^S DISEASE
     Route: 058
     Dates: start: 20081023, end: 20090409
  2. PREDNISOLONE [Concomitant]
     Indication: POLYNEUROPATHY
     Dates: start: 20090125, end: 20090207

REACTIONS (1)
  - Crohn^s disease [Recovered/Resolved]
